FAERS Safety Report 5259281-7 (Version None)
Quarter: 2007Q1

REPORT INFORMATION
  Report Type: 
  Country: None (occurrence: None)
  Receive Date: 20070308
  Receipt Date: 20070306
  Transmission Date: 20070707
  Serious: Yes (Life-Threatening, Hospitalization)
  Sender: FDA-Public Use
  Company Number: JP-BOEHRINGER INGELHEIM PHARMACEUTICALS, INC.-2007-BP-02435NB

PATIENT
  Sex: Male
  Weight: 53.8 kg

DRUGS (7)
  1. MICARDIS [Suspect]
     Indication: HYPERTENSION
     Route: 048
     Dates: start: 20061116, end: 20061126
  2. NORVASC [Concomitant]
     Route: 048
     Dates: start: 20061108, end: 20070215
  3. DILTIAZEM HCL [Concomitant]
     Route: 048
     Dates: start: 20061108, end: 20061225
  4. ASPIRIN [Concomitant]
     Route: 048
     Dates: start: 20061107
  5. OMEPRAL [Concomitant]
     Route: 048
     Dates: start: 20061107
  6. SIGMART [Concomitant]
     Route: 048
     Dates: start: 20061107, end: 20061225
  7. TICLOPIDINE HCL [Concomitant]
     Route: 048
     Dates: start: 20061107

REACTIONS (3)
  - BLOOD CREATININE INCREASED [None]
  - HYPERKALAEMIA [None]
  - RENAL FAILURE [None]
